FAERS Safety Report 7353292-3 (Version None)
Quarter: 2011Q1

REPORT INFORMATION
  Report Type: 
  Country: None (occurrence: None)
  Receive Date: 20110315
  Receipt Date: 20110302
  Transmission Date: 20110831
  Serious: Yes (Other)
  Sender: FDA-Public Use
  Company Number: US-ACTELION-A-US2010-34722

PATIENT

DRUGS (2)
  1. BOSENTAN [Suspect]
     Indication: PULMONARY ARTERIAL HYPERTENSION
     Dosage: 125 ?G, UNK
     Route: 048
     Dates: start: 20091203
  2. BOSENTAN [Suspect]
     Dosage: 62.5 ?G, UNK
     Route: 048
     Dates: start: 20110301

REACTIONS (4)
  - HYPOTENSION [None]
  - MASS [None]
  - ASTHENIA [None]
  - FATIGUE [None]
